FAERS Safety Report 9439423 (Version 3)
Quarter: 2014Q1

REPORT INFORMATION
  Report Type: Spontaneous
  Country: US (occurrence: US)
  Receive Date: 20130805
  Receipt Date: 20140305
  Transmission Date: 20141002
  Serious: Yes (Hospitalization)
  Sender: FDA-Public Use
  Company Number: US-BIOGENIDEC-2013BI070055

PATIENT
  Age: 59 Year
  Sex: Female

DRUGS (2)
  1. TYSABRI [Suspect]
     Indication: MULTIPLE SCLEROSIS
     Route: 042
     Dates: start: 20120424
  2. AVONEX [Concomitant]
     Indication: MULTIPLE SCLEROSIS
     Route: 030
     Dates: start: 19990701

REACTIONS (5)
  - Tendon rupture [Not Recovered/Not Resolved]
  - Cervical spinal stenosis [Recovered/Resolved]
  - Post procedural complication [Not Recovered/Not Resolved]
  - Mobility decreased [Unknown]
  - Dysuria [Not Recovered/Not Resolved]
